FAERS Safety Report 5105778-X (Version None)
Quarter: 2006Q3

REPORT INFORMATION
  Report Type: 
  Country: None (occurrence: None)
  Receive Date: 20060915
  Receipt Date: 20060803
  Transmission Date: 20061208
  Serious: Yes (Other)
  Sender: FDA-Public Use
  Company Number: SE-ROCHE-458030

PATIENT
  Age: 37 Year
  Sex: Male

DRUGS (5)
  1. PEG-INTERFERON ALFA 2A (RO 25-8310) [Suspect]
     Indication: HEPATITIS C
     Route: 042
     Dates: start: 20051115, end: 20060115
  2. RIBAVIRIN [Suspect]
     Indication: HEPATITIS C
     Route: 048
     Dates: start: 20051115, end: 20060115
  3. IMIGRAN [Concomitant]
  4. STESOLID [Concomitant]
  5. CITODON [Concomitant]

REACTIONS (1)
  - CEREBRAL INFARCTION [None]
